FAERS Safety Report 4790360-4 (Version None)
Quarter: 2005Q4

REPORT INFORMATION
  Report Type: 
  Country: None (occurrence: None)
  Receive Date: 20051005
  Receipt Date: 20051005
  Transmission Date: 20060501
  Serious: Yes (Life-Threatening, Hospitalization)
  Sender: FDA-Public Use
  Company Number: None

PATIENT
  Sex: Female

DRUGS (2)
  1. VENLAFAXINE [Suspect]
     Indication: DEPRESSION
     Dosage: ACUTE OVERDOSE
     Dates: start: 20040731
  2. CLONAZEPAM [Suspect]
     Indication: ANXIETY
     Dosage: ACUTE OVERDOSE
     Dates: start: 20040731

REACTIONS (12)
  - AGGRESSION [None]
  - AGITATION [None]
  - ANION GAP DECREASED [None]
  - ANION GAP INCREASED [None]
  - BLOOD PRESSURE DECREASED [None]
  - HALLUCINATION [None]
  - HEART RATE INCREASED [None]
  - HYPERREFLEXIA [None]
  - INTENTIONAL DRUG MISUSE [None]
  - LETHARGY [None]
  - MUSCLE RIGIDITY [None]
  - OVERDOSE [None]
